FAERS Safety Report 5424896-X (Version None)
Quarter: 2007Q3

REPORT INFORMATION
  Report Type: 
  Country: None (occurrence: None)
  Receive Date: 20070824
  Receipt Date: 20070815
  Transmission Date: 20080115
  Serious: Yes (Life-Threatening, Hospitalization, Other)
  Sender: FDA-Public Use
  Company Number: GB-JNJFOC-20070606416

PATIENT
  Sex: Female
  Weight: 55.2 kg

DRUGS (11)
  1. REMICADE [Suspect]
     Indication: RHEUMATOID ARTHRITIS
     Route: 042
  2. ALENDRONIC ACID [Concomitant]
     Route: 048
  3. FERROUS SULFATE TAB [Concomitant]
     Route: 048
  4. METHOTREXATE [Concomitant]
  5. SULFASALAZINE [Concomitant]
  6. VOLTAREN [Concomitant]
     Dosage: ALSO REPORTED AS 50 MG
  7. PREDNISOLONE [Concomitant]
  8. PREDNISOLONE [Concomitant]
  9. PREDNISOLONE [Concomitant]
  10. OMEPRAZOLE [Concomitant]
     Route: 048
  11. WARFARIN SODIUM [Concomitant]
     Route: 048

REACTIONS (3)
  - HAEMOGLOBIN DECREASED [None]
  - PNEUMONIA STREPTOCOCCAL [None]
  - RESPIRATORY FAILURE [None]
